FAERS Safety Report 6139517-0 (Version None)
Quarter: 2009Q2

REPORT INFORMATION
  Report Type: 
  Country: None (occurrence: None)
  Receive Date: 20090401
  Receipt Date: 20090319
  Transmission Date: 20091009
  Serious: Yes (Hospitalization)
  Sender: FDA-Public Use
  Company Number: DE-SANOFI-SYNTHELABO-A01200903010

PATIENT
  Age: 72 Year
  Sex: Male
  Weight: 117 kg

DRUGS (11)
  1. TORSEMIDE [Suspect]
     Indication: HYPERTENSION
     Route: 048
     Dates: start: 20000101
  2. INSULIN HUMAN [Suspect]
     Indication: TYPE 2 DIABETES MELLITUS
     Route: 058
  3. HUMALOG [Suspect]
     Indication: TYPE 2 DIABETES MELLITUS
     Dosage: 30/22/34 IU TID
     Route: 058
  4. BISOPROLOL FUMARATE [Suspect]
     Indication: ATRIAL FIBRILLATION
     Route: 048
     Dates: start: 20030101
  5. AQUAPHOR [Suspect]
     Indication: HYPERTENSION
     Route: 048
     Dates: end: 20081102
  6. ALLOPURINOL [Interacting]
     Indication: HYPERURICAEMIA
     Route: 048
     Dates: start: 20030101
  7. RAMIPRIL [Suspect]
     Indication: HYPERTENSION
     Route: 048
     Dates: start: 19900101, end: 20081102
  8. SIMVASTATIN [Interacting]
     Indication: DYSLIPIDAEMIA
     Route: 048
     Dates: start: 20000101
  9. CLOPIDOGREL [Interacting]
     Indication: CORONARY ARTERY DISEASE
     Route: 048
     Dates: start: 20081020
  10. MARCUMAR [Interacting]
     Indication: AORTIC VALVE STENOSIS
     Dosage: 16.5 MG WEEKLY
     Route: 048
     Dates: start: 20031101, end: 20081103
  11. PENTALONG [Interacting]
     Indication: CORONARY ARTERY DISEASE
     Route: 048
     Dates: start: 20080701

REACTIONS (4)
  - ANAEMIA [None]
  - DRUG INTERACTION [None]
  - EPISTAXIS [None]
  - HAEMORRHAGE [None]
